FAERS Safety Report 12240007 (Version 1)
Quarter: 2016Q2

REPORT INFORMATION
  Report Type: Spontaneous
  Country: US (occurrence: US)
  Receive Date: 20160405
  Receipt Date: 20160405
  Transmission Date: 20160815
  Serious: No
  Sender: FDA-Public Use
  Company Number: US-ROCHE-1681645

PATIENT
  Sex: Female

DRUGS (1)
  1. XENICAL [Suspect]
     Active Substance: ORLISTAT
     Indication: WEIGHT DECREASED
     Dosage: 1 CAPSULE, 3 TIMES A DAY
     Route: 048
     Dates: start: 20020319, end: 2007

REACTIONS (2)
  - Lymphoedema [Unknown]
  - Hypertension [Unknown]

NARRATIVE: CASE EVENT DATE: 2009
